APPROVED DRUG PRODUCT: ZEGALOGUE
Active Ingredient: DASIGLUCAGON HYDROCHLORIDE
Strength: EQ 0.6MG BASE/0.6ML (EQ 0.6MG BASE/0.6ML)
Dosage Form/Route: SOLUTION;SUBCUTANEOUS
Application: N214231 | Product #001
Applicant: ZEALAND PHARMA US INC
Approved: Mar 22, 2021 | RLD: Yes | RS: Yes | Type: RX

PATENTS:
Patent 11795204 | Expires: Jan 6, 2034
Patent 10442847 | Expires: Feb 3, 2035

EXCLUSIVITY:
Code: NCE | Date: Mar 22, 2026